FAERS Safety Report 8476044-X (Version None)
Quarter: 2012Q2

REPORT INFORMATION
  Report Type: 
  Country: None (occurrence: None)
  Receive Date: 20120628
  Receipt Date: 20120626
  Transmission Date: 20120825
  Serious: Yes (Hospitalization)
  Sender: FDA-Public Use
  Company Number: US-PURDUE-USA-2012-0086642

PATIENT
  Sex: Male
  Weight: 105.22 kg

DRUGS (27)
  1. PROBIOTIC [Concomitant]
  2. FEXOFENADINE HCL [Concomitant]
     Dosage: 60 MG, UNK
  3. TERAZOSIN HCL [Concomitant]
     Dosage: 1 MG, UNK
  4. HYDROCODONE BITARTRATE + ACETAMINOPHEN [Concomitant]
     Indication: PAIN
     Dosage: 1 TABLET, UNK
  5. CYMBALTA [Concomitant]
     Indication: PAIN
     Dosage: 60 MG, UNK
  6. NUVIGIL [Concomitant]
     Dosage: 150 MG, DAILY
  7. LYCOPENE [Concomitant]
  8. FOLIC ACID [Concomitant]
     Dosage: 1 MG, UNK
  9. TRAMADOL HCL [Concomitant]
     Indication: ARTHRALGIA
     Dosage: 50 MG, UNK
  10. BUTRANS [Suspect]
     Indication: PAIN
  11. FEXOFENADINE HCL [Concomitant]
     Indication: MULTIPLE ALLERGIES
     Dosage: 1 TABLET, BID
  12. VITAMIN B 12 LICHTENSTEIN [Concomitant]
     Indication: VITAMIN B12 DEFICIENCY
     Dosage: 1000 MCG, WEEKLY
  13. HYDROCORTISONE ACETATE [Concomitant]
     Dosage: 25 MG, UNK
     Route: 054
  14. METAMUCIL                          /00029101/ [Concomitant]
  15. CLOBEX                             /00337102/ [Concomitant]
     Indication: PSORIASIS
  16. SULFASALAZINE [Concomitant]
     Indication: ARTHRITIS
     Dosage: 1000 MG, BID
  17. HYDROCODONE BITARTRATE + ACETAMINOPHEN [Concomitant]
     Dosage: 1 TABLET, UNK
  18. ACETONE [Suspect]
     Indication: ACCIDENTAL EXPOSURE
  19. FLONASE [Concomitant]
     Indication: MULTIPLE ALLERGIES
  20. METHOTREXATE [Concomitant]
     Indication: ARTHRITIS
     Dosage: UNK, WEEKLY
  21. CINNAMON                           /01647501/ [Concomitant]
  22. FOCALIN [Concomitant]
     Dosage: 30 MG, DAILY
  23. FISH OIL W/TOCOPHEROL/BORAGO OFFICINALIS OIL [Concomitant]
  24. BUTRANS [Suspect]
     Indication: PSORIATIC ARTHROPATHY
     Dosage: 10 MCG/HR, UNK
     Route: 062
     Dates: start: 20120412
  25. HYDROXYZINE [Concomitant]
     Indication: PRURITUS
     Dosage: 10 MG, UNK
  26. SIMPONI [Concomitant]
     Indication: ARTHRITIS
  27. BENZOCAIN [Suspect]
     Indication: PROCTALGIA
     Dosage: UNK, BID

REACTIONS (4)
  - NAUSEA [None]
  - SOMNOLENCE [None]
  - EXPOSURE TO TOXIC AGENT [None]
  - HEADACHE [None]
